FAERS Safety Report 25996897 (Version 1)
Quarter: 2025Q4

REPORT INFORMATION
  Report Type: Spontaneous
  Country: US (occurrence: US)
  Receive Date: 20251104
  Receipt Date: 20251104
  Transmission Date: 20260118
  Serious: Yes (Other)
  Sender: TRAVERE THERAPEUTICS
  Company Number: US-TRAVERE-2025TVT02085

PATIENT
  Age: 35 Year
  Sex: Male

DRUGS (1)
  1. FILSPARI [Suspect]
     Active Substance: SPARSENTAN
     Indication: IgA nephropathy
     Route: 048

REACTIONS (1)
  - Nephrolithiasis [Unknown]

NARRATIVE: CASE EVENT DATE: 20250929
